FAERS Safety Report 24940038 (Version 6)
Quarter: 2025Q2

REPORT INFORMATION
  Report Type: Report from Study
  Country: US (occurrence: US)
  Receive Date: 20250207
  Receipt Date: 20250602
  Transmission Date: 20250717
  Serious: Yes (Hospitalization, Other)
  Sender: ABBVIE
  Company Number: US-ABBVIE-6118632

PATIENT
  Age: 69 Year
  Sex: Male
  Weight: 90.718 kg

DRUGS (1)
  1. CREON [Suspect]
     Active Substance: PANCRELIPASE AMYLASE\PANCRELIPASE LIPASE\PANCRELIPASE PROTEASE
     Indication: Pancreatic disorder
     Route: 048
     Dates: start: 20240502

REACTIONS (9)
  - Myocardial infarction [Unknown]
  - Arthritis [Unknown]
  - Chest pain [Recovered/Resolved]
  - Arthralgia [Unknown]
  - Renal impairment [Recovering/Resolving]
  - Urinary retention [Recovered/Resolved]
  - Medical device implantation [Recovering/Resolving]
  - Swelling [Recovering/Resolving]
  - Pneumonia [Recovering/Resolving]

NARRATIVE: CASE EVENT DATE: 20240501
